FAERS Safety Report 17686892 (Version 3)
Quarter: 2021Q2

REPORT INFORMATION
  Report Type: Spontaneous
  Country: US (occurrence: US)
  Receive Date: 20200421
  Receipt Date: 20210611
  Transmission Date: 20210716
  Serious: Yes (Other)
  Sender: FDA-Public Use
  Company Number: US-ASTRAZENECA-2020SE51203

PATIENT
  Age: 70 Year
  Sex: Female
  Weight: 81.6 kg

DRUGS (84)
  1. PRILOSEC [Suspect]
     Active Substance: OMEPRAZOLE MAGNESIUM
     Indication: GASTROOESOPHAGEAL REFLUX DISEASE
     Route: 048
     Dates: start: 200801, end: 201610
  2. PROTONIX [Suspect]
     Active Substance: PANTOPRAZOLE SODIUM
     Indication: GASTROOESOPHAGEAL REFLUX DISEASE
     Dosage: GENERIC
     Route: 065
     Dates: start: 2015, end: 2020
  3. CELEBREX [Concomitant]
     Active Substance: CELECOXIB
  4. L?THYROXINE [Concomitant]
     Active Substance: LEVOTHYROXINE
  5. GLIPIZIDE. [Concomitant]
     Active Substance: GLIPIZIDE
  6. PHENTERMINE. [Concomitant]
     Active Substance: PHENTERMINE
  7. FLUZONE [Concomitant]
     Active Substance: INFLUENZA A VIRUS A/CALIFORNIA/7/2009 X-179A (H1N1) ANTIGEN (FORMALDEHYDE INACTIVATED)\INFLUENZA A VIRUS A/VICTORIA/210/2009 X-187 (H3N2) ANTIGEN (FORMALDEHYDE INACTIVATED)\INFLUENZA B VIRUS B/BRISBANE/60/2008 ANTIGEN (FORMALDEHYDE INACTIVATED)
  8. CITALOPRAM [Concomitant]
     Active Substance: CITALOPRAM HYDROBROMIDE
  9. CLONIDINE. [Concomitant]
     Active Substance: CLONIDINE
  10. SODIUM CHLORIDE. [Concomitant]
     Active Substance: SODIUM CHLORIDE
  11. AMBIEN [Concomitant]
     Active Substance: ZOLPIDEM TARTRATE
  12. PNEUMOCOCCAL VACCINE POLYVALENT NOS [Concomitant]
     Active Substance: PNEUMOCOCCAL VACCINE POLYVALENT
  13. DENTA [Concomitant]
  14. H1N1 [Concomitant]
  15. SUPREP BOWEL PREP [Concomitant]
     Active Substance: MAGNESIUM SULFATE\POTASSIUM SULFATE\SODIUM SULFATE
  16. VESICARE [Concomitant]
     Active Substance: SOLIFENACIN SUCCINATE
  17. OXYCODONE AND ACETAMINOPHEN [Concomitant]
     Active Substance: ACETAMINOPHEN\OXYCODONE HYDROCHLORIDE
  18. PARACETAMOL/DEXTROPROPOXYPHENE [Concomitant]
  19. POTASSIUM CHLORIDE. [Concomitant]
     Active Substance: POTASSIUM CHLORIDE
  20. NYSTATIN. [Concomitant]
     Active Substance: NYSTATIN
  21. LOSARTAN. [Concomitant]
     Active Substance: LOSARTAN
  22. AVANDIA [Concomitant]
     Active Substance: ROSIGLITAZONE MALEATE
  23. DAYPRO [Concomitant]
     Active Substance: OXAPROZIN
  24. LEVOXYL [Concomitant]
     Active Substance: LEVOTHYROXINE SODIUM
  25. ZOSTAVAX [Concomitant]
     Active Substance: VARICELLA-ZOSTER VIRUS STRAIN OKA/MERCK LIVE ANTIGEN
  26. PREPOPIK [Concomitant]
     Active Substance: ANHYDROUS CITRIC ACID\MAGNESIUM OXIDE\SODIUM PICOSULFATE
  27. DOXYCYCLINE HYCLATE. [Concomitant]
     Active Substance: DOXYCYCLINE HYCLATE
  28. BEXTRA [Concomitant]
     Active Substance: VALDECOXIB
  29. ACETAMINOPHEN AND CODEINE [Concomitant]
     Active Substance: ACETAMINOPHEN\CODEINE PHOSPHATE
  30. SPIRIVA [Concomitant]
     Active Substance: TIOTROPIUM BROMIDE MONOHYDRATE
  31. GLIMEPIRIDE. [Concomitant]
     Active Substance: GLIMEPIRIDE
  32. VOLTAREN [Concomitant]
     Active Substance: DICLOFENAC SODIUM
  33. LEVOFLOXACIN. [Concomitant]
     Active Substance: LEVOFLOXACIN
  34. CHERATUSSIN [Concomitant]
     Active Substance: AMMONIUM CHLORIDE\DEXTROMETHORPHAN\SODIUM CITRATE
  35. CIPROFLOXACIN. [Concomitant]
     Active Substance: CIPROFLOXACIN
  36. CEFDINIR. [Concomitant]
     Active Substance: CEFDINIR
  37. ZETIA [Concomitant]
     Active Substance: EZETIMIBE
  38. PERCOCET [Concomitant]
     Active Substance: ACETAMINOPHEN\OXYCODONE HYDROCHLORIDE
  39. CHICKEN POX [Concomitant]
  40. PROTONIX [Suspect]
     Active Substance: PANTOPRAZOLE SODIUM
     Indication: GASTROOESOPHAGEAL REFLUX DISEASE
     Route: 065
     Dates: start: 200801, end: 201610
  41. ZOLPIDEM [Concomitant]
     Active Substance: ZOLPIDEM TARTRATE
  42. ACETAMINOPHEN AND CODEINE [Concomitant]
     Active Substance: ACETAMINOPHEN\CODEINE PHOSPHATE
  43. LORAZEPAM. [Concomitant]
     Active Substance: LORAZEPAM
  44. PREDNISONE. [Concomitant]
     Active Substance: PREDNISONE
  45. AMOXICILLIN/ CLAV [Concomitant]
  46. LIDOCAINE. [Concomitant]
     Active Substance: LIDOCAINE
  47. SIMVASTATIN. [Concomitant]
     Active Substance: SIMVASTATIN
  48. MOMETASONE [Concomitant]
     Active Substance: MOMETASONE
  49. PROAIR HFA [Concomitant]
     Active Substance: ALBUTEROL SULFATE
  50. PNEUMOVAX 23 [Concomitant]
     Active Substance: PNEUMOCOCCAL VACCINE, POLYVALENT 23
  51. BENZONATATE. [Concomitant]
     Active Substance: BENZONATATE
  52. DIAZEPAM. [Concomitant]
     Active Substance: DIAZEPAM
  53. PRILOSEC [Suspect]
     Active Substance: OMEPRAZOLE MAGNESIUM
     Indication: GASTROOESOPHAGEAL REFLUX DISEASE
     Route: 048
     Dates: start: 2008, end: 2015
  54. PROTONIX [Suspect]
     Active Substance: PANTOPRAZOLE SODIUM
     Indication: GASTROOESOPHAGEAL REFLUX DISEASE
     Route: 065
     Dates: start: 2008, end: 2015
  55. METFORMIN [Concomitant]
     Active Substance: METFORMIN HYDROCHLORIDE
  56. OXYBUTYNIN. [Concomitant]
     Active Substance: OXYBUTYNIN CHLORIDE
  57. ESCIN\LEVOTHYROXINE [Concomitant]
     Active Substance: ESCIN\LEVOTHYROXINE
     Indication: HYPOTHYROIDISM
  58. PHENTERMINE. [Concomitant]
     Active Substance: PHENTERMINE
  59. LISINOPRIL/ HYDROCHLOROTHIAZIDE [Concomitant]
     Active Substance: HYDROCHLOROTHIAZIDE\LISINOPRIL
  60. METRONIDAZOLE. [Concomitant]
     Active Substance: METRONIDAZOLE
  61. PROPO?N/ ACETAMINOPHEN [Concomitant]
  62. KETOCONAZOLE. [Concomitant]
     Active Substance: KETOCONAZOLE
  63. AMOXICILLIN. [Concomitant]
     Active Substance: AMOXICILLIN
  64. COREG [Concomitant]
     Active Substance: CARVEDILOL
  65. HYDROCHLOROTHIAZIDE. [Concomitant]
     Active Substance: HYDROCHLOROTHIAZIDE
  66. MELOXICAM. [Concomitant]
     Active Substance: MELOXICAM
  67. VICODIN [Concomitant]
     Active Substance: ACETAMINOPHEN\HYDROCODONE BITARTRATE
  68. XENICAL [Concomitant]
     Active Substance: ORLISTAT
  69. AMOXICILLIN. [Concomitant]
     Active Substance: AMOXICILLIN
  70. METHYLPREDNISOLONE. [Concomitant]
     Active Substance: METHYLPREDNISOLONE
  71. OXYBUTYNIN. [Concomitant]
     Active Substance: OXYBUTYNIN CHLORIDE
  72. CEFADROXIL. [Concomitant]
     Active Substance: CEFADROXIL
  73. MYRBETRIQ [Concomitant]
     Active Substance: MIRABEGRON
  74. PRILOSEC [Suspect]
     Active Substance: OMEPRAZOLE MAGNESIUM
     Indication: GASTROOESOPHAGEAL REFLUX DISEASE
     Dosage: GENERIC
     Route: 065
     Dates: start: 2015
  75. PRILOSEC OTC [Suspect]
     Active Substance: OMEPRAZOLE MAGNESIUM
     Route: 048
  76. LISINOPRIL. [Concomitant]
     Active Substance: LISINOPRIL
  77. METOPROLOL. [Concomitant]
     Active Substance: METOPROLOL
  78. RANEXA [Concomitant]
     Active Substance: RANOLAZINE
  79. NITROGLYCERIN. [Concomitant]
     Active Substance: NITROGLYCERIN
  80. NABUMETONE. [Concomitant]
     Active Substance: NABUMETONE
  81. MOMETASONE [Concomitant]
     Active Substance: MOMETASONE
  82. CITALOPRAM [Concomitant]
     Active Substance: CITALOPRAM HYDROBROMIDE
  83. TRAMDOL [Concomitant]
  84. MUPIROCIN. [Concomitant]
     Active Substance: MUPIROCIN

REACTIONS (3)
  - Gastrooesophageal reflux disease [Not Recovered/Not Resolved]
  - Chronic kidney disease [Not Recovered/Not Resolved]
  - Renal injury [Unknown]

NARRATIVE: CASE EVENT DATE: 2013
